FAERS Safety Report 10011606 (Version 1)
Quarter: 2014Q1

REPORT INFORMATION
  Report Type: Spontaneous
  Country: CA (occurrence: CA)
  Receive Date: 20140314
  Receipt Date: 20140314
  Transmission Date: 20141002
  Serious: Yes (Other)
  Sender: FDA-Public Use
  Company Number: PHHY2014CA030393

PATIENT
  Age: 50 Year
  Sex: Female

DRUGS (5)
  1. IMATINIB [Suspect]
     Indication: CHRONIC MYELOID LEUKAEMIA
     Dosage: UNK
  2. CICLOSPORIN [Concomitant]
     Indication: PROPHYLAXIS AGAINST GRAFT VERSUS HOST DISEASE
  3. METHOTREXATE [Concomitant]
     Indication: PROPHYLAXIS AGAINST GRAFT VERSUS HOST DISEASE
  4. CYTOSINE ARABINOSIDE [Concomitant]
  5. CYCLOPHOSPHAMIDE [Concomitant]

REACTIONS (5)
  - Leukaemia recurrent [Unknown]
  - Acute graft versus host disease [Unknown]
  - Chronic graft versus host disease [Unknown]
  - Chronic myeloid leukaemia [Unknown]
  - Drug ineffective [Unknown]
